FAERS Safety Report 19571331 (Version 2)
Quarter: 2021Q3

REPORT INFORMATION
  Report Type: Report from Study
  Country: US (occurrence: US)
  Receive Date: 20210715
  Receipt Date: 20210803
  Transmission Date: 20211014
  Serious: Yes (Other)
  Sender: FDA-Public Use
  Company Number: NVSC2021US152661

PATIENT
  Sex: Female

DRUGS (1)
  1. ENTRESTO [Suspect]
     Active Substance: SACUBITRIL\VALSARTAN
     Indication: PRODUCT USED FOR UNKNOWN INDICATION
     Dosage: 50 MG, BID (24/26 MG)
     Route: 048
     Dates: start: 20210702

REACTIONS (6)
  - Dyspepsia [Unknown]
  - Dyspnoea [Unknown]
  - Nervousness [Unknown]
  - Cough [Unknown]
  - Product dose omission issue [Unknown]
  - Rheumatoid arthritis [Unknown]
